FAERS Safety Report 9383196 (Version 4)
Quarter: 2013Q4

REPORT INFORMATION
  Report Type: Report from Study
  Country: CA (occurrence: CA)
  Receive Date: 20130704
  Receipt Date: 20131024
  Transmission Date: 20140711
  Serious: Yes (Hospitalization, Other)
  Sender: FDA-Public Use
  Company Number: CA-ROCHE-1074293

PATIENT
  Age: 50 Year
  Sex: Female
  Weight: 52 kg

DRUGS (11)
  1. ACTEMRA [Suspect]
     Indication: RHEUMATOID ARTHRITIS
     Dosage: DATE OF LAST DOSE: 02/MAY/2012.
     Route: 042
     Dates: start: 20120208
  2. ACTEMRA [Suspect]
     Route: 065
     Dates: start: 20120718
  3. ACTEMRA [Suspect]
     Dosage: DATE OF MOST RECENT DOSE: 26/JUN/2013.
     Route: 065
     Dates: start: 20121108
  4. ACTEMRA [Suspect]
     Route: 065
     Dates: start: 20130529
  5. ACTEMRA [Suspect]
     Route: 042
     Dates: start: 20130827
  6. PREDNISONE [Concomitant]
  7. ACTONEL [Concomitant]
  8. FOLIC ACID [Concomitant]
  9. LOSEC (CANADA) [Concomitant]
  10. VAGIFEM [Concomitant]
  11. METHOTREXATE [Concomitant]

REACTIONS (9)
  - White blood cell count decreased [Unknown]
  - Pneumonia [Recovering/Resolving]
  - Bone disorder [Recovering/Resolving]
  - Hypotension [Not Recovered/Not Resolved]
  - Leukopenia [Unknown]
  - Injection site swelling [Unknown]
  - Infection [Unknown]
  - Malaise [Unknown]
  - Nasopharyngitis [Unknown]
